FAERS Safety Report 5941935-8 (Version None)
Quarter: 2008Q4

REPORT INFORMATION
  Report Type: 
  Country: None (occurrence: None)
  Receive Date: 20081105
  Receipt Date: 20081031
  Transmission Date: 20090506
  Serious: Yes (Hospitalization)
  Sender: FDA-Public Use
  Company Number: DE-BAYER-200824200GPV

PATIENT
  Age: 24 Year
  Sex: Male

DRUGS (1)
  1. MAGNEVIST [Suspect]
     Indication: DRUG USE FOR UNKNOWN INDICATION
     Dosage: AS USED: 15 ML  UNIT DOSE: 100 ML
     Route: 065

REACTIONS (7)
  - CARDIOVASCULAR DISORDER [None]
  - CIRCULATORY COLLAPSE [None]
  - CYANOSIS [None]
  - DEAFNESS [None]
  - DIZZINESS [None]
  - HYPOTENSION [None]
  - NAUSEA [None]
